FAERS Safety Report 5849630-0 (Version None)
Quarter: 2008Q3

REPORT INFORMATION
  Report Type: 
  Country: None (occurrence: None)
  Receive Date: 20080819
  Receipt Date: 20080807
  Transmission Date: 20090109
  Serious: Yes (Other)
  Sender: FDA-Public Use
  Company Number: JP-AVENTIS-200811744JP

PATIENT
  Age: 51 Year
  Sex: Female
  Weight: 54.5 kg

DRUGS (7)
  1. TAXOTERE [Suspect]
     Indication: BREAST CANCER
     Route: 041
     Dates: start: 20080523, end: 20080613
  2. CYCLOPHOSPHAMIDE [Suspect]
     Indication: BREAST CANCER
     Route: 041
     Dates: start: 20080523, end: 20080613
  3. FERROMIA                           /00023516/ [Concomitant]
     Route: 048
  4. LOXONIN                            /00890701/ [Concomitant]
     Indication: PAIN
     Route: 048
  5. NEOMALLERMIN TR [Concomitant]
     Route: 048
  6. KYTRIL                             /01178101/ [Concomitant]
     Indication: PREMEDICATION
     Route: 041
     Dates: start: 20080523
  7. DECADRON [Concomitant]
     Indication: PREMEDICATION
     Route: 041
     Dates: start: 20080523

REACTIONS (3)
  - ERYTHEMA [None]
  - PRURITUS [None]
  - SHOCK [None]
